FAERS Safety Report 24141560 (Version 1)
Quarter: 2024Q3

REPORT INFORMATION
  Report Type: Spontaneous
  Country: IL (occurrence: IL)
  Receive Date: 20240726
  Receipt Date: 20240726
  Transmission Date: 20241017
  Serious: Yes (Death, Other)
  Sender: RANBAXY
  Company Number: IL-SUN PHARMACEUTICAL INDUSTRIES LTD-2024R1-458667

PATIENT
  Age: 73 Year
  Sex: Female

DRUGS (7)
  1. CARBOPLATIN [Suspect]
     Active Substance: CARBOPLATIN
     Indication: Non-small cell lung cancer stage IIIB
     Dosage: UNK
     Route: 065
     Dates: start: 201604
  2. PEMETREXED [Suspect]
     Active Substance: PEMETREXED
     Indication: Non-small cell lung cancer stage IIIB
     Dosage: UNK
     Route: 065
  3. ERLOTINIB [Suspect]
     Active Substance: ERLOTINIB
     Indication: Non-small cell lung cancer stage IIIB
     Dosage: UNK
     Route: 065
  4. CRIZOTINIB [Suspect]
     Active Substance: CRIZOTINIB
     Indication: Non-small cell lung cancer stage IIIB
     Dosage: 250 MILLIGRAM, BID
     Route: 065
  5. OSIMERTINIB [Suspect]
     Active Substance: OSIMERTINIB
     Indication: Non-small cell lung cancer stage IIIB
     Dosage: 80 MILLIGRAM, DAILY
     Route: 065
  6. PEMBROLIZUMAB [Suspect]
     Active Substance: PEMBROLIZUMAB
     Indication: Non-small cell lung cancer stage IIIB
     Dosage: UNK
     Route: 065
  7. VINORELBINE [Suspect]
     Active Substance: VINORELBINE TARTRATE
     Indication: Non-small cell lung cancer stage IIIB
     Dosage: UNK
     Route: 048

REACTIONS (3)
  - Disease progression [Fatal]
  - Ischaemic stroke [Unknown]
  - Gene mutation [Not Recovered/Not Resolved]
